FAERS Safety Report 12828244 (Version 7)
Quarter: 2018Q4

REPORT INFORMATION
  Report Type: Report from Study
  Country: FR (occurrence: FR)
  Receive Date: 20161007
  Receipt Date: 20181109
  Transmission Date: 20190204
  Serious: Yes (Hospitalization, Other)
  Sender: FDA-Public Use
  Company Number: FR-EXELIXIS-XL18416007218

PATIENT
  Age: 34 Year
  Sex: Male
  Weight: 105 kg

DRUGS (3)
  1. XL184 [Suspect]
     Active Substance: CABOZANTINIB
     Indication: OSTEOSARCOMA
     Dosage: 60 MG, QD
     Route: 048
     Dates: start: 20151201
  2. XL184 [Suspect]
     Active Substance: CABOZANTINIB
     Dosage: 60 MG, QD
     Route: 048
     Dates: start: 2016, end: 20160917
  3. ARIXTRA [Concomitant]
     Active Substance: FONDAPARINUX SODIUM
     Indication: TUMOUR THROMBOSIS

REACTIONS (4)
  - Pneumothorax [Not Recovered/Not Resolved]
  - Lung infection [Recovered/Resolved]
  - Pneumothorax [Recovering/Resolving]
  - Pneumothorax [Not Recovered/Not Resolved]

NARRATIVE: CASE EVENT DATE: 20160721
